FAERS Safety Report 8325459-9 (Version None)
Quarter: 2012Q2

REPORT INFORMATION
  Report Type: 
  Country: None (occurrence: None)
  Receive Date: 20120501
  Receipt Date: 20120425
  Transmission Date: 20120825
  Serious: Yes (Other)
  Sender: FDA-Public Use
  Company Number: PHHY2012BR035938

PATIENT
  Sex: Female
  Weight: 54 kg

DRUGS (1)
  1. EXELON [Suspect]
     Indication: DEMENTIA ALZHEIMER'S TYPE
     Dosage: 4.6 MG DAILY (9MG/5CM2)
     Route: 062

REACTIONS (3)
  - AREFLEXIA [None]
  - DRUG INTOLERANCE [None]
  - DYSPHAGIA [None]
